FAERS Safety Report 9960834 (Version 2)
Quarter: 2014Q1

REPORT INFORMATION
  Report Type: Spontaneous
  Country: US (occurrence: None)
  Receive Date: 20140228
  Receipt Date: 20140304
  Transmission Date: 20141002
  Serious: Yes (Life-Threatening, Other)
  Sender: FDA-Public Use
  Company Number: 2202022

PATIENT
  Age: 56 Year
  Sex: Female
  Weight: 80 kg

DRUGS (4)
  1. KETAMINE HYDROCHLORIDE INJECTION USP [Suspect]
     Indication: SEDATION
     Dosage: 25 MG, INTRAVENOUS (NOT OTHERWISE SEPCIFIED)
     Route: 042
     Dates: start: 20140131
  2. MIDAZOLAM [Suspect]
     Indication: ANAESTHESIA
     Dosage: 2 MG, INTRAVENOUS (NOT OTHERWISE SPECIFIED)
     Route: 042
     Dates: start: 20140131
  3. FENTANYL CITRATE [Suspect]
     Indication: SEDATION
     Dosage: 50 UG MICROGRAM, INTRAVENOUS (NOT OTHERWISE SPECIFIED)
     Route: 042
     Dates: start: 20140131
  4. DECADRON /00016001/ [Concomitant]

REACTIONS (2)
  - Respiratory arrest [None]
  - Somnolence [None]
